FAERS Safety Report 23683013 (Version 1)
Quarter: 2024Q1

REPORT INFORMATION
  Report Type: Spontaneous
  Country: US (occurrence: US)
  Receive Date: 20240328
  Receipt Date: 20240328
  Transmission Date: 20240410
  Serious: No
  Sender: FDA-Public Use
  Company Number: US-Covis Pharma GmbH-2024COV00245

PATIENT
  Age: 56 Year
  Sex: Male
  Weight: 91.399 kg

DRUGS (16)
  1. RILUZOLE [Suspect]
     Active Substance: RILUZOLE
     Route: 048
  2. RELYVRIO [Suspect]
     Active Substance: SODIUM PHENYLBUTYRATE\TAURURSODIOL
     Indication: Amyotrophic lateral sclerosis
     Dosage: 1 DOSAGE FORM 1 SACHET ONCE DAILY FOR FIRST 3 WEEKS THEN ONE SACHET TWICE DAILY, EVERY 1 DAYS
     Route: 048
     Dates: start: 20240214, end: 202402
  3. RADICAVA [Concomitant]
     Active Substance: EDARAVONE
     Dosage: 300 MG/100 ML PIGGYBACK
  4. QUETIAPINE [Concomitant]
     Active Substance: QUETIAPINE
  5. ROSUVASTATIN [Concomitant]
     Active Substance: ROSUVASTATIN
  6. NATURAL VITAMIN D [Concomitant]
  7. VITAMIN B12 [Concomitant]
     Active Substance: CYANOCOBALAMIN
  8. LEVOTHYROXINE [Concomitant]
     Active Substance: LEVOTHYROXINE\LEVOTHYROXINE SODIUM
  9. Vitafit Tart Cherry [Concomitant]
  10. TRAZODONE [Concomitant]
     Active Substance: TRAZODONE HYDROCHLORIDE
  11. ESCITALOPRAM [Concomitant]
     Active Substance: ESCITALOPRAM OXALATE
  12. ATIVAN [Concomitant]
     Active Substance: LORAZEPAM
  13. ASPIRIN [Concomitant]
     Active Substance: ASPIRIN
  14. BEETROOT [Concomitant]
  15. HERBALS\TURMERIC [Concomitant]
     Active Substance: HERBALS\TURMERIC
  16. GINGER [Concomitant]
     Active Substance: GINGER

REACTIONS (4)
  - Drug intolerance [Unknown]
  - Vomiting [Unknown]
  - Product use complaint [Unknown]
  - Incorrect dose administered [Unknown]
